FAERS Safety Report 5340231-X (Version None)
Quarter: 2007Q2

REPORT INFORMATION
  Report Type: 
  Country: None (occurrence: None)
  Receive Date: 20070531
  Receipt Date: 20070521
  Transmission Date: 20071010
  Serious: Yes (Other)
  Sender: FDA-Public Use
  Company Number: CH-GENENTECH-220696

PATIENT
  Age: 56 Year
  Sex: Male
  Weight: 65 kg

DRUGS (7)
  1. MABTHERA [Suspect]
     Indication: NON-HODGKIN'S LYMPHOMA
     Dosage: 700 MG, 2/MONTH
     Route: 042
     Dates: start: 20050607
  2. ONCOVIN [Suspect]
     Indication: NON-HODGKIN'S LYMPHOMA
     Dosage: 2 MG, 2/MONTH
     Route: 042
     Dates: start: 20050607
  3. ENDOXAN [Suspect]
     Indication: NON-HODGKIN'S LYMPHOMA
     Dosage: 1400 MG, UNK
     Route: 042
     Dates: start: 20050607
  4. FARMORUBICIN [Suspect]
     Indication: NON-HODGKIN'S LYMPHOMA
     Dosage: 140 MG, 2/MONTH
     Route: 042
     Dates: start: 20050607
  5. PREDNISONE TAB [Suspect]
     Indication: NON-HODGKIN'S LYMPHOMA
     Dosage: 1000 MG, 1/MONTH
     Route: 048
     Dates: start: 20050607
  6. ZOFRAN [Concomitant]
     Indication: NON-HODGKIN'S LYMPHOMA
     Dosage: 16 MG, 2/MONTH
     Route: 048
     Dates: start: 20050617, end: 20050714
  7. NAVOBAN [Concomitant]
     Indication: NON-HODGKIN'S LYMPHOMA
     Dosage: 15 MG, 2/MONTH
     Route: 048
     Dates: start: 20050729

REACTIONS (4)
  - MUSCLE ATROPHY [None]
  - NEURALGIA [None]
  - PARAESTHESIA [None]
  - PARESIS [None]
